FAERS Safety Report 5639064-6 (Version None)
Quarter: 2008Q1

REPORT INFORMATION
  Report Type: 
  Country: None (occurrence: None)
  Receive Date: 20080226
  Receipt Date: 20070425
  Transmission Date: 20080703
  Serious: No
  Sender: FDA-Public Use
  Company Number: US-BAUSCH-2007BL001382

PATIENT
  Sex: Male

DRUGS (1)
  1. FLUNISOLIDE NASAL SOLUTION USP 0.025% [Suspect]
     Indication: RHINITIS
     Route: 045
     Dates: start: 20050101

REACTIONS (2)
  - EPISTAXIS [None]
  - NASAL DRYNESS [None]
